FAERS Safety Report 11271472 (Version 1)
Quarter: 2015Q3

REPORT INFORMATION
  Report Type: Spontaneous
  Country: US (occurrence: US)
  Receive Date: 20150714
  Receipt Date: 20150714
  Transmission Date: 20151125
  Serious: No
  Sender: FDA-Public Use
  Company Number: US-SHIRE-US201507857

PATIENT
  Age: 9 Year
  Sex: Male

DRUGS (1)
  1. VPRIV [Suspect]
     Active Substance: VELAGLUCERASE ALFA
     Indication: GAUCHER^S DISEASE TYPE I
     Dosage: 60 IU/KG, UNKNOWN
     Route: 041

REACTIONS (2)
  - Infusion related reaction [Unknown]
  - Vomiting [Unknown]

NARRATIVE: CASE EVENT DATE: 20150708
